FAERS Safety Report 7556728-8 (Version None)
Quarter: 2011Q2

REPORT INFORMATION
  Report Type: 
  Country: None (occurrence: None)
  Receive Date: 20110620
  Receipt Date: 20110602
  Transmission Date: 20111010
  Serious: No
  Sender: FDA-Public Use
  Company Number: US-B.I. PHARMACEUTICALS,INC./RIDGEFIELD-2011-BP-07765BP

PATIENT
  Sex: Female
  Weight: 78.02 kg

DRUGS (7)
  1. ASPIRIN [Concomitant]
  2. PRADAXA [Suspect]
     Indication: ATRIAL FIBRILLATION
     Dosage: 300 MG
  3. DILTIAZEM [Concomitant]
  4. ATENOLOL [Concomitant]
  5. ATERCAL [Concomitant]
  6. AMITRIPTYLINE HYDROCHLORIDE [Concomitant]
  7. LISINOPRIL [Concomitant]

REACTIONS (5)
  - DYSPEPSIA [None]
  - GASTROOESOPHAGEAL REFLUX DISEASE [None]
  - VASCULAR INJURY [None]
  - CONTUSION [None]
  - HAEMATOMA [None]
